FAERS Safety Report 11490841 (Version 1)
Quarter: 2015Q3

REPORT INFORMATION
  Report Type: Spontaneous
  Country: US (occurrence: US)
  Receive Date: 20150910
  Receipt Date: 20150910
  Transmission Date: 20151125
  Serious: No
  Sender: FDA-Public Use
  Company Number: US-ACTELION PHARMACEUTICALS US, INC.-A-NJ2015-122666

PATIENT
  Age: 32 Year
  Sex: Female
  Weight: 99.8 kg

DRUGS (3)
  1. REMODULIN [Suspect]
     Active Substance: TREPROSTINIL
     Indication: PULMONARY ARTERIAL HYPERTENSION
     Dosage: 75 NG/KG, PER MIN
     Route: 042
     Dates: start: 20110826
  2. TRACLEER [Suspect]
     Active Substance: BOSENTAN
     Indication: PULMONARY ARTERIAL HYPERTENSION
     Route: 048
  3. LETAIRIS [Concomitant]
     Active Substance: AMBRISENTAN

REACTIONS (2)
  - Anxiety [Unknown]
  - Extra dose administered [Unknown]
